FAERS Safety Report 12673669 (Version 1)
Quarter: 2016Q3

REPORT INFORMATION
  Report Type: Spontaneous
  Country: FR (occurrence: FR)
  Receive Date: 20160822
  Receipt Date: 20160822
  Transmission Date: 20161109
  Serious: Yes (Hospitalization)
  Sender: FDA-Public Use
  Company Number: FR-JNJFOC-20160816688

PATIENT
  Age: 52 Year
  Sex: Female

DRUGS (4)
  1. APRANAX [Concomitant]
     Active Substance: NAPROXEN
     Indication: SCIATICA
     Route: 048
     Dates: start: 20160711, end: 20160717
  2. LAMICTAL [Concomitant]
     Active Substance: LAMOTRIGINE
     Indication: BIPOLAR DISORDER
     Route: 048
  3. IXPRIM [Suspect]
     Active Substance: ACETAMINOPHEN\TRAMADOL HYDROCHLORIDE
     Indication: SCIATICA
     Dosage: LAST INTAKE ON 17-JUL-2016 IN THE EVENING
     Route: 048
     Dates: start: 20160711, end: 20160717
  4. ALPRAZOLAM. [Concomitant]
     Active Substance: ALPRAZOLAM
     Indication: PRODUCT USED FOR UNKNOWN INDICATION
     Route: 065

REACTIONS (6)
  - Crying [Recovered/Resolved]
  - Appetite disorder [Recovered/Resolved]
  - Depersonalisation/derealisation disorder [Recovered/Resolved]
  - Hallucination, visual [Recovered/Resolved]
  - Thymus disorder [Recovered/Resolved]
  - Sleep disorder [Recovered/Resolved]

NARRATIVE: CASE EVENT DATE: 20160716
